FAERS Safety Report 9585843 (Version 3)
Quarter: 2013Q4

REPORT INFORMATION
  Report Type: Spontaneous
  Country: US (occurrence: US)
  Receive Date: 20131003
  Receipt Date: 20131212
  Transmission Date: 20140711
  Serious: Yes (Disabling, Other)
  Sender: FDA-Public Use
  Company Number: US-CELGENEUS-163-20785-13050601

PATIENT
  Age: 58 Year
  Sex: Male

DRUGS (9)
  1. THALOMID [Suspect]
     Indication: PLASMA CELL MYELOMA
     Dosage: 50 MILLIGRAM
     Route: 048
     Dates: start: 20120403
  2. THALOMID [Suspect]
     Dosage: 50 MILLIGRAM
     Route: 048
     Dates: start: 20121219, end: 20130423
  3. VELCADE [Suspect]
     Indication: PRODUCT USED FOR UNKNOWN INDICATION
     Route: 065
  4. FLEXERIL [Concomitant]
     Indication: BACK PAIN
     Route: 058
     Dates: start: 20120228
  5. DECADRON [Concomitant]
     Indication: PLASMA CELL MYELOMA
     Route: 048
     Dates: start: 20120305
  6. PERCOCET [Concomitant]
     Indication: PAIN
     Dosage: 7.5/325
     Route: 048
     Dates: start: 20120117
  7. OXYCONTIN [Concomitant]
     Indication: PAIN
     Dosage: 40 MILLIGRAM
     Route: 048
     Dates: start: 20120214
  8. VITAMIN B12 [Concomitant]
     Indication: VITAMIN B12 DEFICIENCY
     Dosage: 1000 MICROGRAM
     Route: 058
     Dates: start: 20121121
  9. VITAMIN B12 [Concomitant]
     Indication: ANAEMIA

REACTIONS (4)
  - Pericardial effusion [Unknown]
  - Neuropathy peripheral [Not Recovered/Not Resolved]
  - Pleural effusion [Not Recovered/Not Resolved]
  - Fatigue [Not Recovered/Not Resolved]
